FAERS Safety Report 10077413 (Version 1)
Quarter: 2014Q2

REPORT INFORMATION
  Report Type: Spontaneous
  Country: US (occurrence: US)
  Receive Date: 20140414
  Receipt Date: 20140414
  Transmission Date: 20141212
  Serious: No
  Sender: FDA-Public Use
  Company Number: US-BANPHARM-20131492

PATIENT
  Age: 63 Year
  Sex: Male
  Weight: 58.96 kg

DRUGS (5)
  1. NAPROXEN SODIUM 220 MG [Suspect]
     Indication: NECK PAIN
     Dosage: 220 MG, BID,
     Route: 048
     Dates: start: 2012, end: 201306
  2. NAPROXEN SODIUM 220 MG [Suspect]
     Indication: NECK PAIN
     Dosage: 220 MG, BID,
     Route: 048
     Dates: start: 20130628, end: 20130628
  3. POTASSIUM CITRATE [Concomitant]
  4. ANTIHYPERTENSIVES [Concomitant]
  5. SERTRALINE [Concomitant]

REACTIONS (2)
  - Drug ineffective [Unknown]
  - Incorrect drug administration duration [Unknown]
